FAERS Safety Report 17545832 (Version 1)
Quarter: 2020Q1

REPORT INFORMATION
  Report Type: Spontaneous
  Country: US (occurrence: US)
  Receive Date: 20200306
  Receipt Date: 20200306
  Transmission Date: 20200409
  Serious: Yes (Hospitalization, Other)
  Sender: FDA-Public Use
  Company Number: None

PATIENT
  Age: 76 Year
  Sex: Male
  Weight: 75 kg

DRUGS (1)
  1. ENZALUTAMIDE (ENZALUTAMIDE 40MG CAP, ORAL) [Suspect]
     Active Substance: ENZALUTAMIDE
     Indication: HORMONE-REFRACTORY PROSTATE CANCER
     Route: 048
     Dates: start: 20190110, end: 20191114

REACTIONS (5)
  - Seizure [None]
  - Loss of consciousness [None]
  - Syncope [None]
  - Road traffic accident [None]
  - Vision blurred [None]

NARRATIVE: CASE EVENT DATE: 20191113
